FAERS Safety Report 5574812-5 (Version None)
Quarter: 2007Q4

REPORT INFORMATION
  Report Type: 
  Country: None (occurrence: None)
  Receive Date: 20071130
  Receipt Date: 20070912
  Transmission Date: 20080405
  Serious: No
  Sender: FDA-Public Use
  Company Number: PHEH2007US12370

PATIENT
  Sex: Female

DRUGS (2)
  1. TEKTURNA [Suspect]
     Indication: HYPERTENSION
     Dosage: 150 UNK QD UNK; 300 UNK UNK
     Dates: end: 20070910
  2. TEKTURNA [Suspect]
     Indication: HYPERTENSION
     Dosage: 150 UNK QD UNK; 300 UNK UNK
     Dates: start: 20070813

REACTIONS (2)
  - BLOOD PRESSURE INCREASED [None]
  - HEADACHE [None]
